FAERS Safety Report 7734321-1 (Version None)
Quarter: 2011Q3

REPORT INFORMATION
  Report Type: 
  Country: None (occurrence: None)
  Receive Date: 20110907
  Receipt Date: 20110830
  Transmission Date: 20111222
  Serious: Yes (Life-Threatening, Hospitalization, Other)
  Sender: FDA-Public Use
  Company Number: US-ASTRAZENECA-2011SE39311

PATIENT
  Age: 60 Year
  Sex: Female

DRUGS (15)
  1. PLAVIX [Concomitant]
     Route: 048
  2. LYRICA [Concomitant]
     Route: 048
  3. LEVEMIR [Concomitant]
     Dosage: 100 UNIT/ML, 34 UNITS ONCE EVERY NIGHT AT BEDTIME, 34-38 UNITS AT BEDTIME
     Route: 058
  4. VERELAN PM [Concomitant]
     Route: 048
  5. VICODIN ES [Concomitant]
     Dosage: 7.5/750 MILLIGRAM, ONE TABLET BY MOUTH EVERY 6 HOURS AS NEEDED
     Route: 048
  6. NEXIUM [Suspect]
     Dosage: BEFORE BREAKFAST
     Route: 048
  7. ZANAFLEX [Concomitant]
     Route: 048
  8. METOPROLOL SUCCINATE [Suspect]
     Route: 048
  9. ALTACE [Concomitant]
     Route: 048
  10. TRICOR [Concomitant]
     Route: 048
  11. ACTOS [Concomitant]
     Route: 048
  12. CRESTOR [Suspect]
     Route: 048
  13. BETASERON [Concomitant]
     Route: 058
  14. NOVOLOG [Concomitant]
     Dosage: 100 UNIT/ML, ONCE DAILY BEFORE BREAKFAST AS PER SLIDING SCALE
     Route: 058
  15. XANAX [Concomitant]
     Dosage: AS REQUIRED
     Route: 048

REACTIONS (25)
  - COMA [None]
  - CHOLELITHIASIS [None]
  - CORONARY ARTERY DISEASE [None]
  - PLEURAL EFFUSION [None]
  - ACUTE MYOCARDIAL INFARCTION [None]
  - PANCREATITIS [None]
  - EJECTION FRACTION DECREASED [None]
  - TYPE 2 DIABETES MELLITUS [None]
  - CARDIAC FAILURE CONGESTIVE [None]
  - LEFT VENTRICULAR DYSFUNCTION [None]
  - DYSLIPIDAEMIA [None]
  - MYOPATHY [None]
  - OBESITY [None]
  - ACUTE CORONARY SYNDROME [None]
  - DYSPNOEA [None]
  - MYOCARDIAL INFARCTION [None]
  - RENAL FAILURE [None]
  - MALAISE [None]
  - OXYGEN SATURATION DECREASED [None]
  - URINARY RETENTION [None]
  - ANXIETY [None]
  - HYPOMAGNESAEMIA [None]
  - ATRIAL FIBRILLATION [None]
  - RENAL FAILURE ACUTE [None]
  - BLOOD UREA INCREASED [None]
